FAERS Safety Report 11655957 (Version 1)
Quarter: 2015Q4

REPORT INFORMATION
  Report Type: Spontaneous
  Country: CA (occurrence: CA)
  Receive Date: 20151023
  Receipt Date: 20151023
  Transmission Date: 20160304
  Serious: Yes (Hospitalization)
  Sender: FDA-Public Use
  Company Number: CA-TEVA-601907ACC

PATIENT
  Age: 34 Year
  Sex: Female
  Weight: 61.29 kg

DRUGS (2)
  1. RATIO-BUPROPION SR [Suspect]
     Active Substance: BUPROPION
     Indication: DEPRESSION
     Route: 048
  2. RATIO-BUPROPION SR [Suspect]
     Active Substance: BUPROPION
     Indication: ANXIETY

REACTIONS (3)
  - Insomnia [Recovered/Resolved]
  - Thinking abnormal [Recovered/Resolved]
  - Psychomotor hyperactivity [Recovered/Resolved]
